FAERS Safety Report 5688230-2 (Version None)
Quarter: 2008Q1

REPORT INFORMATION
  Report Type: 
  Country: None (occurrence: None)
  Receive Date: 20080331
  Receipt Date: 20080319
  Transmission Date: 20080703
  Serious: Yes (Other)
  Sender: FDA-Public Use
  Company Number: GB-RANBAXY-2008RR-13939

PATIENT

DRUGS (5)
  1. CODEINE SUL TAB [Suspect]
     Indication: PAIN PROPHYLAXIS
     Dosage: 3 DF, UNK
  2. CONCENTRA XL [Suspect]
     Dosage: 18 MG, UNK
     Route: 048
  3. MOVICOL [Suspect]
     Dosage: 2 DF, UNK
  4. ACETAMINOPHEN [Suspect]
     Indication: PAIN PROPHYLAXIS
     Dosage: 1 G, QID
  5. PROSTIN E2 [Suspect]
     Indication: LABOUR INDUCTION
     Dosage: 5 MG, UNK
     Route: 067
     Dates: start: 20071212, end: 20071223

REACTIONS (4)
  - ARTHRALGIA [None]
  - DRUG EXPOSURE DURING PREGNANCY [None]
  - PREMATURE LABOUR [None]
  - PUBIC PAIN [None]
